FAERS Safety Report 7673138-3 (Version None)
Quarter: 2011Q3

REPORT INFORMATION
  Report Type: 
  Country: None (occurrence: None)
  Receive Date: 20110810
  Receipt Date: 20110805
  Transmission Date: 20111222
  Serious: No
  Sender: FDA-Public Use
  Company Number: US-BIOGENIDEC-2011BI029695

PATIENT
  Age: 61 Year
  Sex: Female

DRUGS (2)
  1. TYLENOL-500 [Concomitant]
     Indication: PREMEDICATION
  2. AVONEX [Suspect]
     Indication: MULTIPLE SCLEROSIS
     Route: 030
     Dates: start: 20110722

REACTIONS (3)
  - PARALYSIS [None]
  - INFLUENZA LIKE ILLNESS [None]
  - LOSS OF CONTROL OF LEGS [None]
